FAERS Safety Report 8947681 (Version 1)
Quarter: 2012Q4

REPORT INFORMATION
  Report Type: Report from Study
  Country: CH (occurrence: US)
  Receive Date: 20121204
  Receipt Date: 20121204
  Transmission Date: 20130627
  Serious: Yes (Hospitalization)
  Sender: FDA-Public Use
  Company Number: US-BRISTOL-MYERS SQUIBB COMPANY-17158254

PATIENT
  Age: 66 Year
  Sex: Male

DRUGS (16)
  1. CETUXIMAB [Suspect]
     Indication: HEAD AND NECK CANCER
     Dosage: Recent dose: 30Jun11
     Route: 065
     Dates: start: 20110517
  2. CISPLATIN [Suspect]
     Indication: HEAD AND NECK CANCER
     Route: 065
     Dates: start: 20110517
  3. BEVACIZUMAB [Suspect]
     Indication: HEAD AND NECK CANCER
     Dates: start: 20110517
  4. ACETAMINOPHEN [Concomitant]
     Indication: PAIN
     Route: 048
  5. DOCUSATE SODIUM [Concomitant]
     Indication: LAXATIVE SUPPORTIVE CARE
     Route: 048
  6. ZANTAC [Concomitant]
     Indication: GASTROOESOPHAGEAL REFLUX DISEASE
     Route: 048
  7. XOPENEX [Concomitant]
     Indication: ASTHMA
     Route: 048
  8. OXYCODONE [Concomitant]
     Indication: PAIN
     Route: 048
  9. DOXYCYCLINE [Concomitant]
     Indication: RASH
     Route: 048
  10. APREPITANT [Concomitant]
     Dosage: 1250mg
     Route: 048
  11. DEXAMETHASONE [Concomitant]
     Dosage: morning
     Route: 048
  12. METOCLOPRAMIDE [Concomitant]
     Indication: NAUSEA
     Route: 048
  13. TRIAMCINOLONE [Concomitant]
     Indication: RASH
     Route: 061
  14. CEFALEXIN [Concomitant]
     Indication: RASH
     Route: 048
  15. CIPRO [Concomitant]
     Indication: RASH
     Route: 048
  16. FENTANYL [Concomitant]
     Indication: PAIN

REACTIONS (2)
  - Thrombosis [Recovering/Resolving]
  - Pneumonia [Recovering/Resolving]
